FAERS Safety Report 26139273 (Version 1)
Quarter: 2025Q4

REPORT INFORMATION
  Report Type: Spontaneous
  Country: US (occurrence: US)
  Receive Date: 20251210
  Receipt Date: 20251210
  Transmission Date: 20260118
  Serious: No
  Sender: NEUROCRINE BIOSCIENCES
  Company Number: US-NEUROCRINE BIOSCIENCES INC.-2025NBI16090

PATIENT
  Sex: Female

DRUGS (3)
  1. INGREZZA [Suspect]
     Active Substance: VALBENAZINE DITOSYLATE
     Indication: Tardive dyskinesia
     Dosage: 40 MILLIGRAM
     Route: 065
  2. SUNOSI [Suspect]
     Active Substance: SOLRIAMFETOL
     Indication: Poor quality sleep
     Route: 065
  3. SUNOSI [Suspect]
     Active Substance: SOLRIAMFETOL
     Indication: Sleep apnoea syndrome

REACTIONS (3)
  - Sleep apnoea syndrome [Unknown]
  - Poor quality sleep [Unknown]
  - Dyskinesia [Unknown]
